FAERS Safety Report 18104389 (Version 1)
Quarter: 2020Q3

REPORT INFORMATION
  Report Type: Spontaneous
  Country: US (occurrence: US)
  Receive Date: 20200803
  Receipt Date: 20200803
  Transmission Date: 20201103
  Serious: Yes (Other)
  Sender: FDA-Public Use
  Company Number: None

PATIENT
  Age: 47 Year
  Sex: Female
  Weight: 81.9 kg

DRUGS (17)
  1. LOSARTAN. [Concomitant]
     Active Substance: LOSARTAN
  2. VITAMIN D3 [Concomitant]
     Active Substance: CHOLECALCIFEROL
  3. ATORVASTATIN [Concomitant]
     Active Substance: ATORVASTATIN
  4. PROCHLORPERAZINE. [Concomitant]
     Active Substance: PROCHLORPERAZINE
  5. BUPIVACAINE. [Concomitant]
     Active Substance: BUPIVACAINE
  6. ASPIRIN. [Concomitant]
     Active Substance: ASPIRIN
  7. AMLODIPINE [Concomitant]
     Active Substance: AMLODIPINE BESYLATE
  8. METHADONE [Concomitant]
     Active Substance: METHADONE HYDROCHLORIDE
  9. VENLAFAXINE [Concomitant]
     Active Substance: VENLAFAXINE HYDROCHLORIDE
  10. MORPHINE [Concomitant]
     Active Substance: MORPHINE
  11. LETROZOLE. [Concomitant]
     Active Substance: LETROZOLE
  12. JANUVIA [Concomitant]
     Active Substance: SITAGLIPTIN PHOSPHATE
  13. HYDROCODONE BITARTRATE AND ACETAMINOPHEN [Concomitant]
     Active Substance: ACETAMINOPHEN\HYDROCODONE BITARTRATE
  14. ATMOXETINE [Concomitant]
  15. VERZENIO [Suspect]
     Active Substance: ABEMACICLIB
     Indication: BREAST CANCER FEMALE
     Route: 048
     Dates: start: 20200625
  16. RELISTOR [Concomitant]
     Active Substance: METHYLNALTREXONE BROMIDE
  17. ALPRAZOLAM. [Concomitant]
     Active Substance: ALPRAZOLAM

REACTIONS (1)
  - Fatigue [None]

NARRATIVE: CASE EVENT DATE: 20200803
